FAERS Safety Report 4781982-5 (Version None)
Quarter: 2005Q3

REPORT INFORMATION
  Report Type: 
  Country: None (occurrence: None)
  Receive Date: 20050927
  Receipt Date: 20050914
  Transmission Date: 20060218
  Serious: Yes (Death)
  Sender: FDA-Public Use
  Company Number: 2005129309

PATIENT
  Age: 64 Year

DRUGS (3)
  1. ALPRAZOLAM [Suspect]
     Indication: ILL-DEFINED DISORDER
     Dates: end: 20040101
  2. HYDROCONE W/ACETAMINOPHEN (HYDROCODONE BITARTRATE, PARACETAMOL) [Suspect]
     Indication: ILL-DEFINED DISORDER
     Dates: end: 20040101
  3. CARISOPRODOL [Suspect]
     Indication: ILL-DEFINED DISORDER
     Dates: end: 20040101

REACTIONS (4)
  - CARDIO-RESPIRATORY ARREST [None]
  - COMPLETED SUICIDE [None]
  - INTENTIONAL MISUSE [None]
  - MULTIPLE DRUG OVERDOSE [None]
